FAERS Safety Report 7887936-4 (Version None)
Quarter: 2011Q4

REPORT INFORMATION
  Report Type: 
  Country: None (occurrence: None)
  Receive Date: 20111103
  Receipt Date: 20111021
  Transmission Date: 20120403
  Serious: Yes (Hospitalization)
  Sender: FDA-Public Use
  Company Number: US-ACTELION-A-NJ2011-55508

PATIENT

DRUGS (6)
  1. DIGOXIN [Concomitant]
  2. EPOPROSTENOL SODIUM [Suspect]
     Indication: PULMONARY ARTERIAL HYPERTENSION
     Dosage: 48 NG/KG, PER MIN
     Route: 041
     Dates: start: 20101105
  3. SILDENAFIL [Concomitant]
  4. COUMADIN [Concomitant]
  5. TRACLEER [Suspect]
     Indication: PULMONARY ARTERIAL HYPERTENSION
     Dosage: UNK
     Route: 048
     Dates: start: 20090521
  6. ALDACTONE [Concomitant]

REACTIONS (3)
  - MALAISE [None]
  - DEVICE RELATED INFECTION [None]
  - CENTRAL VENOUS CATHETERISATION [None]
